FAERS Safety Report 9848971 (Version 3)
Quarter: 2014Q2

REPORT INFORMATION
  Report Type: Spontaneous
  Country: US (occurrence: US)
  Receive Date: 20140128
  Receipt Date: 20140520
  Transmission Date: 20141212
  Serious: Yes (Other)
  Sender: FDA-Public Use
  Company Number: US-ASTELLAS-2014US000659

PATIENT
  Age: 81 Year
  Sex: Male

DRUGS (1)
  1. XTANDI [Suspect]
     Indication: METASTASIS
     Route: 048
     Dates: start: 20131210

REACTIONS (5)
  - Tremor [Unknown]
  - Hypophagia [Unknown]
  - Blood glucose decreased [Unknown]
  - Insomnia [Unknown]
  - Fatigue [Unknown]
